FAERS Safety Report 9559454 (Version 1)
Quarter: 2013Q3

REPORT INFORMATION
  Report Type: Spontaneous
  Country: US (occurrence: None)
  Receive Date: 20130909
  Receipt Date: 20130909
  Transmission Date: 20140515
  Serious: Yes (Hospitalization)
  Sender: FDA-Public Use
  Company Number: 373254

PATIENT
  Age: 58 Year
  Sex: Male
  Weight: 113.4 kg

DRUGS (5)
  1. VICTOZA [Suspect]
     Indication: TYPE 2 DIABETES MELLITUS
     Route: 058
     Dates: start: 201110, end: 20130126
  2. GLIPIZIDE (GLIPIZIDE) [Concomitant]
  3. ACTOPLUS MET(METFORMIN HYDROCHLORIDE) [Concomitant]
  4. PIOGLITAZONE HYDROCHLORIDE [Concomitant]
  5. LANTUS(INSULIN GLARGINE) [Concomitant]

REACTIONS (1)
  - Pancreatitis [None]
